FAERS Safety Report 7021082-7 (Version None)
Quarter: 2010Q3

REPORT INFORMATION
  Report Type: 
  Country: None (occurrence: None)
  Receive Date: 20100929
  Receipt Date: 20100915
  Transmission Date: 20110219
  Serious: Yes (Hospitalization)
  Sender: FDA-Public Use
  Company Number: DE-MYLANLABS-2010S1016849

PATIENT
  Age: 71 Year
  Sex: Male
  Weight: 85 kg

DRUGS (10)
  1. ENALAPRIL MALEATE [Suspect]
     Indication: HYPERTENSION
     Route: 048
     Dates: start: 20060101
  2. NOVORAPID [Interacting]
     Indication: DIABETES MELLITUS
     Dosage: DOSEN JE APPLIKATION: 20/10/12 IU
     Route: 058
     Dates: start: 20080101, end: 20080908
  3. LEVEMIR [Interacting]
     Indication: DIABETES MELLITUS
     Dosage: 22:00 UHR
     Route: 058
     Dates: start: 20080101
  4. LERCANIDIPINE [Interacting]
     Indication: HYPERTENSION
     Route: 048
     Dates: start: 20060101
  5. OPIPRAMOL [Interacting]
     Indication: RESTLESSNESS
     Route: 048
     Dates: start: 20070101, end: 20080906
  6. TARGIN [Interacting]
     Indication: BACK PAIN
     Dosage: 1DF=20MG OXYCODON + 10MG NALOXON
     Route: 048
     Dates: start: 20070101
  7. CLOPIDOGREL [Concomitant]
     Indication: ISCHAEMIC HEART DISEASE PROPHYLAXIS
     Route: 048
     Dates: start: 20050801
  8. MELPERONE [Concomitant]
     Indication: RESTLESSNESS
     Dosage: DOSEN JE APPLIKATION: 12.5/12.5/25 MG
     Route: 048
     Dates: start: 20080401, end: 20080909
  9. PLETAL [Concomitant]
     Indication: PERIPHERAL ARTERIAL OCCLUSIVE DISEASE
     Dosage: MORGENS UND ABENDS 2 STUNDEN NACH DEM ESSEN
     Route: 048
  10. PENTOXIFYLLIN AL [Concomitant]
     Indication: PERIPHERAL ARTERIAL OCCLUSIVE DISEASE
     Route: 048
     Dates: start: 20050101

REACTIONS (3)
  - DIZZINESS [None]
  - DRUG INTERACTION [None]
  - HYPOGLYCAEMIA [None]
